FAERS Safety Report 5650458-5 (Version None)
Quarter: 2008Q1

REPORT INFORMATION
  Report Type: 
  Country: None (occurrence: None)
  Receive Date: 20080304
  Receipt Date: 20080304
  Transmission Date: 20080703
  Serious: Yes (Death, Life-Threatening, Hospitalization)
  Sender: FDA-Public Use
  Company Number: None

PATIENT
  Age: 72 Year
  Sex: Male
  Weight: 90.1 kg

DRUGS (16)
  1. SIROLIMUS   1MG   WYETH PHARMACEUTICALS [Suspect]
     Indication: HEART TRANSPLANT
     Dosage: 2MG  DAILY  PO
     Route: 048
  2. SIROLIMUS   1MG   WYETH PHARMACEUTICALS [Suspect]
     Indication: IMMUNE SYSTEM DISORDER
     Dosage: 2MG  DAILY  PO
     Route: 048
  3. MYCOPHENOLATE MOFETIL [Concomitant]
  4. FENOFIBRATE [Concomitant]
  5. QUININE SULFATE [Concomitant]
  6. LEVOTHYROXINE SODIUM [Concomitant]
  7. OMEPRAZOLE [Concomitant]
  8. POTASSIUM CHLORIDE [Concomitant]
  9. AMLODIPINE [Concomitant]
  10. DIPYRIDAMOLE [Concomitant]
  11. EZETIMIBE/SIMVASTATIN [Concomitant]
  12. TRIMETHOPRIM + SULFAMETHOXAZOLE [Concomitant]
  13. OYSTER SHELL CALCIUM + VITAMIN D [Concomitant]
  14. ASCORBIC ACID [Concomitant]
  15. ASPIRIN [Concomitant]
  16. THERAPEUTIC MULTIVITAMIN [Concomitant]

REACTIONS (14)
  - ACIDOSIS [None]
  - CARDIO-RESPIRATORY ARREST [None]
  - HYPERSENSITIVITY [None]
  - HYPOTENSION [None]
  - HYPOXIA [None]
  - LACTIC ACIDOSIS [None]
  - LUNG INJURY [None]
  - NO THERAPEUTIC RESPONSE [None]
  - PLEURAL EFFUSION [None]
  - PNEUMONIA [None]
  - PRODUCTIVE COUGH [None]
  - PULSE ABSENT [None]
  - PYREXIA [None]
  - TACHYCARDIA [None]
